FAERS Safety Report 13663783 (Version 1)
Quarter: 2017Q2

REPORT INFORMATION
  Report Type: Spontaneous
  Country: US (occurrence: US)
  Receive Date: 20170619
  Receipt Date: 20170619
  Transmission Date: 20170830
  Serious: Yes (Hospitalization)
  Sender: FDA-Public Use
  Company Number: US-ASTELLAS-2017US023371

PATIENT
  Sex: Male

DRUGS (1)
  1. XTANDI [Suspect]
     Active Substance: ENZALUTAMIDE
     Indication: PROSTATE CANCER
     Route: 048

REACTIONS (9)
  - Peripheral swelling [Unknown]
  - Prostatic specific antigen increased [Unknown]
  - Underdose [Unknown]
  - Joint swelling [Unknown]
  - Memory impairment [Unknown]
  - Confusional state [Unknown]
  - Abasia [Unknown]
  - Constipation [Unknown]
  - Blood potassium decreased [Unknown]
